FAERS Safety Report 7379291-3 (Version None)
Quarter: 2011Q1

REPORT INFORMATION
  Report Type: 
  Country: None (occurrence: None)
  Receive Date: 20110329
  Receipt Date: 20110216
  Transmission Date: 20110831
  Serious: Yes (Hospitalization)
  Sender: FDA-Public Use
  Company Number: AT-AMGEN-KDC420728

PATIENT
  Age: 67 Year
  Sex: Male

DRUGS (3)
  1. TAXOTERE [Concomitant]
     Dosage: UNK
     Route: 042
     Dates: start: 20100216
  2. PANITUMUMAB [Suspect]
     Indication: SQUAMOUS CELL CARCINOMA
     Dosage: 639 MG, UNK
     Route: 042
     Dates: start: 20100526
  3. CISPLATIN [Concomitant]
     Dosage: UNK
     Route: 042
     Dates: start: 20100216

REACTIONS (4)
  - BRONCHITIS [None]
  - VOMITING [None]
  - HYPONATRAEMIA [None]
  - CONVULSION [None]
